FAERS Safety Report 9601073 (Version 2)
Quarter: 2013Q4

REPORT INFORMATION
  Report Type: Spontaneous
  Country: US (occurrence: US)
  Receive Date: 20131004
  Receipt Date: 20131004
  Transmission Date: 20140711
  Serious: No
  Sender: FDA-Public Use
  Company Number: US-AMGEN-USASP2013023058

PATIENT
  Age: 61 Year
  Sex: Female
  Weight: 94.33 kg

DRUGS (12)
  1. ENBREL [Suspect]
     Indication: RHEUMATOID ARTHRITIS
     Dosage: 50 MG, QWK
     Route: 058
     Dates: start: 20130314, end: 201305
  2. COD LIVER [Concomitant]
     Dosage: UNK
  3. B12                                /00056201/ [Concomitant]
     Dosage: 1 MG, UNK
  4. HYDROCODONE/APAP [Concomitant]
     Dosage: 5-500 MG, UNK
  5. FERROUS SULFATE [Concomitant]
     Dosage: UNK
  6. OXYBUTYNIN [Concomitant]
     Dosage: 5 MG, UNK
  7. LOSARTAN POTASSSIUM [Concomitant]
     Dosage: 50 MG, UNK
  8. FOLIC ACID [Concomitant]
     Dosage: UNK
  9. METHOTREXATE [Concomitant]
     Dosage: 2.5 MG, UNK
  10. POTASSIUM [Concomitant]
     Dosage: 95 MG, UNK
  11. CYCLOBENZAPRINE [Concomitant]
     Dosage: 5 MG, UNK
  12. REMICAIDE [Concomitant]
     Dosage: UNK UNK, Q8WK

REACTIONS (6)
  - Fatigue [Unknown]
  - Headache [Unknown]
  - Pain [Not Recovered/Not Resolved]
  - Insomnia [Unknown]
  - Drug ineffective [Not Recovered/Not Resolved]
  - Injection site swelling [Unknown]
